FAERS Safety Report 10576738 (Version 1)
Quarter: 2014Q4

REPORT INFORMATION
  Report Type: Spontaneous
  Country: US (occurrence: None)
  Receive Date: 20141110
  Receipt Date: 20141110
  Transmission Date: 20150529
  Serious: No
  Sender: FDA-Public Use
  Company Number: None

PATIENT
  Age: 53 Year
  Sex: Female
  Weight: 83.92 kg

DRUGS (1)
  1. PREDNISOLONE. [Suspect]
     Active Substance: PREDNISOLONE
     Indication: SURGERY
     Dosage: INSTILL 1 DROP TWICE A DAY FOR, INTO THE EYE
     Dates: start: 20141001, end: 20141107

REACTIONS (1)
  - Dizziness [None]
